FAERS Safety Report 13643275 (Version 1)
Quarter: 2017Q2

REPORT INFORMATION
  Report Type: Spontaneous
  Country: US (occurrence: US)
  Receive Date: 20170612
  Receipt Date: 20170612
  Transmission Date: 20170830
  Serious: Yes (Other)
  Sender: FDA-Public Use
  Company Number: US-PFIZER INC-2017248113

PATIENT
  Age: 52 Year
  Sex: Male
  Weight: 90.7 kg

DRUGS (7)
  1. LEVOTHYROXINE. [Concomitant]
     Active Substance: LEVOTHYROXINE
     Dosage: 300 UG, 1X/DAY
  2. LEVOTHYROXINE. [Concomitant]
     Active Substance: LEVOTHYROXINE
     Dosage: 200 UG, 1X/DAY
  3. LASIX [Concomitant]
     Active Substance: FUROSEMIDE
     Indication: FLUID RETENTION
     Dosage: 160 MG, DAILY
  4. LASIX [Concomitant]
     Active Substance: FUROSEMIDE
     Dosage: 80 MG, DAILY
  5. LEVOTHYROXINE. [Concomitant]
     Active Substance: LEVOTHYROXINE
     Indication: HYPOTHYROIDISM
     Dosage: 200 UG, 1X/DAY
     Route: 048
  6. CHANTIX [Suspect]
     Active Substance: VARENICLINE TARTRATE
     Indication: SMOKING CESSATION THERAPY
     Dosage: 5 MG, 2X/DAY
     Route: 048
     Dates: start: 201612, end: 20170407
  7. LEVOTHYROXINE. [Concomitant]
     Active Substance: LEVOTHYROXINE
     Dosage: 400 UG, 1X/DAY

REACTIONS (7)
  - Peripheral swelling [Recovered/Resolved]
  - Blood thyroid stimulating hormone increased [Recovered/Resolved]
  - Abdominal distension [Recovered/Resolved]
  - Fluid retention [Unknown]
  - Condition aggravated [Recovered/Resolved]
  - Renal disorder [Recovered/Resolved]
  - Weight increased [Unknown]

NARRATIVE: CASE EVENT DATE: 2017
